FAERS Safety Report 15865426 (Version 2)
Quarter: 2019Q1

REPORT INFORMATION
  Report Type: Spontaneous
  Country: HR (occurrence: HR)
  Receive Date: 20190124
  Receipt Date: 20190306
  Transmission Date: 20190417
  Serious: Yes (Death, Life-Threatening, Hospitalization)
  Sender: FDA-Public Use
  Company Number: HR-ABBVIE-19K-216-2638185-00

PATIENT
  Age: 73 Year
  Sex: Male
  Weight: 50 kg

DRUGS (1)
  1. VENCLYXTO [Suspect]
     Active Substance: VENETOCLAX
     Indication: CHRONIC LYMPHOCYTIC LEUKAEMIA
     Route: 048
     Dates: start: 20181026, end: 20181029

REACTIONS (7)
  - Myelodysplastic syndrome [Fatal]
  - Septic shock [Fatal]
  - Chronic lymphocytic leukaemia refractory [Fatal]
  - Hypokalaemia [Fatal]
  - Sepsis [Fatal]
  - Pneumonia [Fatal]
  - Chronic lymphocytic leukaemia recurrent [Fatal]

NARRATIVE: CASE EVENT DATE: 20181027
